FAERS Safety Report 9913725 (Version 1)
Quarter: 2014Q1

REPORT INFORMATION
  Report Type: Spontaneous
  Country: US (occurrence: None)
  Receive Date: 20140214
  Receipt Date: 20140214
  Transmission Date: 20141002
  Serious: Yes (Death)
  Sender: FDA-Public Use
  Company Number: AUR-APL-2014-01435

PATIENT
  Age: 22 Year
  Sex: Male

DRUGS (9)
  1. OXYCODONE(OXYCODONE) [Suspect]
     Indication: PRODUCT USED FOR UNKNOWN INDICATION
  2. ALPRAZOLAM (ALPRAZOLAM) [Suspect]
     Indication: PRODUCT USED FOR UNKNOWN INDICATION
  3. CYCLOBENZAPRINE [Suspect]
     Indication: PRODUCT USED FOR UNKNOWN INDICATION
  4. HEROIN (DIAMORPHINE) (DIAMORPHINE) [Suspect]
     Indication: PRODUCT USED FOR UNKNOWN INDICATION
     Route: 051
  5. HYDROCODONE (HYDROCODONE) [Suspect]
     Indication: PRODUCT USED FOR UNKNOWN INDICATION
  6. TRAMADOL (TRAMADOL) [Suspect]
     Indication: PRODUCT USED FOR UNKNOWN INDICATION
  7. DOXYLAMINE (DOXYLAMINE) [Suspect]
     Indication: PRODUCT USED FOR UNKNOWN INDICATION
  8. PHENCYCLIDINE [Suspect]
     Indication: PRODUCT USED FOR UNKNOWN INDICATION
  9. ACETAMINOPHEN (PARACETAMOL) [Suspect]
     Indication: PRODUCT USED FOR UNKNOWN INDICATION

REACTIONS (2)
  - Drug abuse [None]
  - Toxicity to various agents [None]
